FAERS Safety Report 20560588 (Version 8)
Quarter: 2023Q2

REPORT INFORMATION
  Report Type: Report from Study
  Country: US (occurrence: US)
  Receive Date: 20220307
  Receipt Date: 20230421
  Transmission Date: 20230722
  Serious: Yes (Hospitalization)
  Sender: FDA-Public Use
  Company Number: US-NOVARTISTESTPH-NVSC2022US051914

PATIENT
  Age: 56 Year
  Sex: Male

DRUGS (1)
  1. KESIMPTA [Suspect]
     Active Substance: OFATUMUMAB
     Indication: Multiple sclerosis
     Dosage: 20 MG, QMO
     Route: 058
     Dates: start: 20210503

REACTIONS (9)
  - Pneumonia [Recovering/Resolving]
  - Multiple sclerosis relapse [Recovered/Resolved]
  - Facial paralysis [Unknown]
  - Asthenia [Recovered/Resolved]
  - SARS-CoV-2 test positive [Recovered/Resolved]
  - Pericardial effusion [Unknown]
  - Chest pain [Unknown]
  - Fall [Unknown]
  - Neck injury [Unknown]

NARRATIVE: CASE EVENT DATE: 20220201
